FAERS Safety Report 9407885 (Version 2)
Quarter: 2013Q3

REPORT INFORMATION
  Report Type: Spontaneous
  Country: US (occurrence: None)
  Receive Date: 20130430
  Receipt Date: 20130815
  Transmission Date: 20140515
  Serious: Yes (Life-Threatening, Hospitalization, Other)
  Sender: FDA-Public Use
  Company Number: ADR-2013-00112

PATIENT
  Sex: 0

DRUGS (1)
  1. BACLOFEN INTRATHECAL [Suspect]

REACTIONS (5)
  - Device computer issue [None]
  - Overdose [None]
  - Multiple injuries [None]
  - Injury [None]
  - Drug prescribing error [None]
